FAERS Safety Report 25269040 (Version 1)
Quarter: 2025Q2

REPORT INFORMATION
  Report Type: Spontaneous
  Country: US (occurrence: US)
  Receive Date: 20250505
  Receipt Date: 20250505
  Transmission Date: 20250717
  Serious: No
  Sender: ASTELLAS
  Company Number: US-ASTELLAS-2025-AER-011907

PATIENT
  Age: 56 Year
  Sex: Male

DRUGS (1)
  1. VYLOY [Suspect]
     Active Substance: ZOLBETUXIMAB-CLZB
     Indication: Adenocarcinoma gastric
     Route: 042

REACTIONS (2)
  - Underdose [Unknown]
  - Off label use [Unknown]
